FAERS Safety Report 24286689 (Version 1)
Quarter: 2024Q3

REPORT INFORMATION
  Report Type: Report from Study
  Country: US (occurrence: US)
  Receive Date: 20240905
  Receipt Date: 20240905
  Transmission Date: 20241016
  Serious: Yes (Hospitalization, Other)
  Sender: ABBVIE
  Company Number: US-ABBVIE-5855135

PATIENT
  Sex: Male
  Weight: 97 kg

DRUGS (8)
  1. HUMIRA [Suspect]
     Active Substance: ADALIMUMAB
     Indication: Crohn^s disease
     Dosage: FORM STRENGTH: 40MILLIGRAM
     Route: 058
     Dates: start: 20180212, end: 20191209
  2. HUMIRA [Suspect]
     Active Substance: ADALIMUMAB
     Dosage: FORM STRENGTH: 40MILLIGRAM
     Route: 058
     Dates: start: 202006
  3. HUMIRA [Suspect]
     Active Substance: ADALIMUMAB
     Dosage: FORM STRENGTH: 40MILLIGRAM
     Route: 058
     Dates: start: 20200210, end: 202005
  4. ATORVASTATIN [Concomitant]
     Active Substance: ATORVASTATIN
     Indication: Hyperlipidaemia
  5. OMEPRAZOLE [Concomitant]
     Active Substance: OMEPRAZOLE
     Indication: Barrett^s oesophagus
  6. TRULICITY [Suspect]
     Active Substance: DULAGLUTIDE
     Indication: Diabetes mellitus
     Dosage: STOP DATE TEXT: APR-2024 OR MAY-2024
     Route: 065
     Dates: start: 202210
  7. LISINOPRIL [Concomitant]
     Active Substance: LISINOPRIL
     Indication: Hypertension
  8. MONTELUKAST [Concomitant]
     Active Substance: MONTELUKAST SODIUM
     Indication: Multiple allergies

REACTIONS (9)
  - Intestinal obstruction [Recovered/Resolved]
  - Diabetes mellitus [Recovering/Resolving]
  - Feeling abnormal [Recovering/Resolving]
  - Pharyngitis streptococcal [Recovered/Resolved]
  - Gastrointestinal wall thickening [Recovering/Resolving]
  - Abdominal pain upper [Recovered/Resolved]
  - Drug ineffective [Unknown]
  - Abdominal pain lower [Recovering/Resolving]
  - Nausea [Not Recovered/Not Resolved]

NARRATIVE: CASE EVENT DATE: 20190101
